FAERS Safety Report 5261468-4 (Version None)
Quarter: 2007Q1

REPORT INFORMATION
  Report Type: 
  Country: None (occurrence: None)
  Receive Date: 20070307
  Receipt Date: 20070219
  Transmission Date: 20070707
  Serious: Yes (Hospitalization, Other)
  Sender: FDA-Public Use
  Company Number: 2007BL000533

PATIENT
  Age: 58 Year
  Sex: Male

DRUGS (2)
  1. FLOXAL AUGENSALBE (EYE OINTMENT) (OFLOXACIN) [Suspect]
     Indication: EPISCLERITIS
     Dosage: 1 APPLICATION; TWICE A DAY; RIGHT EYE
     Route: 047
     Dates: end: 20010827
  2. BROMFENAC SODIUM (BROMFENAC SODIUM) [Suspect]
     Indication: EPISCLERITIS
     Dosage: RIGHT EYE
     Route: 047
     Dates: start: 20010821, end: 20010827

REACTIONS (4)
  - ANTERIOR CHAMBER DISORDER [None]
  - CORNEAL OEDEMA [None]
  - STAPHYLOCOCCAL INFECTION [None]
  - ULCERATIVE KERATITIS [None]
